FAERS Safety Report 8594265 (Version 3)
Quarter: 2014Q2

REPORT INFORMATION
  Report Type: Spontaneous
  Country: FR (occurrence: FR)
  Receive Date: 20120604
  Receipt Date: 20131017
  Transmission Date: 20141212
  Serious: Yes (Hospitalization, Disabling)
  Sender: FDA-Public Use
  Company Number: FR-PFIZER INC-2012126622

PATIENT
  Age: 47 Year
  Sex: Female

DRUGS (8)
  1. ARACYTINE [Suspect]
     Indication: ACUTE MYELOID LEUKAEMIA
     Dosage: 3000 MG/M2, 2X/DAY, CONSOLIDATION
     Route: 041
     Dates: start: 20120418, end: 20120422
  2. VANCOMYCIN [Suspect]
     Dosage: 1.5 G, 1X/DAY
     Route: 041
     Dates: start: 20120419
  3. VFEND [Concomitant]
     Dosage: 200 MG, 2X/DAY
     Route: 048
  4. PIPERACILLIN/TAZOBACTAM KABI [Concomitant]
     Dosage: 4 G, 3X/DAY
     Route: 042
     Dates: start: 20120419
  5. NEUPOGEN [Concomitant]
     Dosage: 5 UG/KG, 1X/DAY
     Route: 058
     Dates: start: 20120418, end: 20120422
  6. EUPANTOL [Concomitant]
     Dosage: 40 MG, 1X/DAY
     Route: 048
  7. LUTERAN [Concomitant]
     Dosage: 5 MG, 1X/DAY
  8. MAG 2 [Concomitant]
     Dosage: 2 VIALS, 3X/DAY

REACTIONS (1)
  - Cerebellar syndrome [Recovered/Resolved with Sequelae]
